FAERS Safety Report 15675542 (Version 1)
Quarter: 2018Q4

REPORT INFORMATION
  Report Type: Report from Study
  Country: KR (occurrence: KR)
  Receive Date: 20181130
  Receipt Date: 20181130
  Transmission Date: 20190205
  Serious: Yes (Hospitalization, Other)
  Sender: FDA-Public Use
  Company Number: KR-GLAXOSMITHKLINE-KR2018GSK202784

PATIENT
  Sex: Female
  Weight: 61 kg

DRUGS (1)
  1. UMECLIDINIUM BROMIDE [Suspect]
     Active Substance: UMECLIDINIUM BROMIDE
     Indication: CHRONIC OBSTRUCTIVE PULMONARY DISEASE
     Dosage: 62.5 UG, QD
     Route: 055
     Dates: start: 20180515

REACTIONS (1)
  - Atypical mycobacterial infection [Not Recovered/Not Resolved]

NARRATIVE: CASE EVENT DATE: 20180809
